FAERS Safety Report 18976931 (Version 2)
Quarter: 2021Q1

REPORT INFORMATION
  Report Type: Other
  Country: CH (occurrence: CH)
  Receive Date: 20210306
  Receipt Date: 20210325
  Transmission Date: 20210420
  Serious: Yes (Death)
  Sender: FDA-Public Use
  Company Number: CH-ROCHE-2782185

PATIENT
  Age: 66 Year
  Sex: Male

DRUGS (8)
  1. OCREVUS [Suspect]
     Active Substance: OCRELIZUMAB
     Indication: RELAPSING-REMITTING MULTIPLE SCLEROSIS
     Dosage: DOSE?  INFUSION CONCENTRATION 300 MG/10 ML VIAL, CYCLE?1
     Route: 042
     Dates: start: 20190704, end: 202102
  2. OCREVUS [Suspect]
     Active Substance: OCRELIZUMAB
     Route: 042
     Dates: start: 201907, end: 202008
  3. SOLU?MEDROL [Concomitant]
     Active Substance: METHYLPREDNISOLONE SODIUM SUCCINATE
     Route: 042
     Dates: start: 201907, end: 202008
  4. TAVEGYL [Concomitant]
     Active Substance: CLEMASTINE FUMARATE
     Dates: start: 201907, end: 202008
  5. OCREVUS [Suspect]
     Active Substance: OCRELIZUMAB
     Dosage: CYLCE?2
     Route: 042
     Dates: start: 20200210
  6. OCREVUS [Suspect]
     Active Substance: OCRELIZUMAB
     Dosage: CYCLE?1
     Route: 042
     Dates: start: 20190719
  7. OCREVUS [Suspect]
     Active Substance: OCRELIZUMAB
     Dosage: CYLCE?3
     Route: 042
     Dates: start: 20200818
  8. DAFALGAN [Concomitant]
     Active Substance: ACETAMINOPHEN
     Route: 048
     Dates: start: 201907, end: 202008

REACTIONS (1)
  - Death [Fatal]
